FAERS Safety Report 15864524 (Version 1)
Quarter: 2019Q1

REPORT INFORMATION
  Report Type: Spontaneous
  Country: US (occurrence: US)
  Receive Date: 20190124
  Receipt Date: 20190124
  Transmission Date: 20190417
  Serious: Yes (Death, Other)
  Sender: FDA-Public Use
  Company Number: US-ELI_LILLY_AND_COMPANY-US201901011716

PATIENT
  Sex: Male

DRUGS (1)
  1. CETUXIMAB. [Suspect]
     Active Substance: CETUXIMAB
     Indication: SQUAMOUS CELL CARCINOMA OF HEAD AND NECK
     Dosage: UNK, WEEKLY (1/W)
     Route: 065

REACTIONS (8)
  - Sepsis [Fatal]
  - Abscess [Unknown]
  - Radiation skin injury [Unknown]
  - Dry mouth [Unknown]
  - Radiation mucositis [Unknown]
  - Medical device site haemorrhage [Unknown]
  - Complication associated with device [Unknown]
  - Pancytopenia [Fatal]
